FAERS Safety Report 20677587 (Version 2)
Quarter: 2022Q2

REPORT INFORMATION
  Report Type: Report from Study
  Country: JP (occurrence: JP)
  Receive Date: 20220406
  Receipt Date: 20220615
  Transmission Date: 20220721
  Serious: Yes (Hospitalization)
  Sender: FDA-Public Use
  Company Number: JP-TEVA-2022-JP-2025000

PATIENT
  Age: 44 Year
  Sex: Male
  Weight: 76 kg

DRUGS (4)
  1. MODAFINIL [Suspect]
     Active Substance: MODAFINIL
     Indication: Hypersomnia
     Dosage: 300 MILLIGRAM DAILY;
     Route: 048
     Dates: start: 20200302, end: 20200705
  2. MODAFINIL [Suspect]
     Active Substance: MODAFINIL
     Dosage: 200 MILLIGRAM DAILY;
     Route: 048
     Dates: start: 20200706, end: 20210331
  3. LUNESTA [Concomitant]
     Active Substance: ESZOPICLONE
     Indication: Insomnia
     Dosage: 3 MILLIGRAM DAILY;
     Route: 048
     Dates: start: 20200302, end: 20210331
  4. BELSOMRA [Concomitant]
     Active Substance: SUVOREXANT
     Indication: Insomnia
     Dosage: 10 MILLIGRAM DAILY;
     Route: 048
     Dates: start: 20200302, end: 20210331

REACTIONS (1)
  - Angina pectoris [Recovered/Resolved]

NARRATIVE: CASE EVENT DATE: 20200518
